FAERS Safety Report 9308180 (Version 2)
Quarter: 2013Q2

REPORT INFORMATION
  Report Type: Report from Study
  Country: ES (occurrence: ES)
  Receive Date: 20130524
  Receipt Date: 20130528
  Transmission Date: 20140414
  Serious: Yes (Hospitalization)
  Sender: FDA-Public Use
  Company Number: ES-PFIZER INC-2013156495

PATIENT
  Age: 51 Year
  Sex: Male

DRUGS (2)
  1. ALDACTONE [Suspect]
     Indication: LIVER DISORDER
     Dosage: 100 MG, 1X/DAY
     Route: 048
     Dates: start: 2011, end: 20120326
  2. SEGURIL [Interacting]
     Indication: LIVER DISORDER
     Dosage: 40 MG, 1X/DAY
     Route: 048
     Dates: start: 2011, end: 20120326

REACTIONS (4)
  - Hyponatraemia [Recovered/Resolved]
  - Encephalopathy [Recovered/Resolved]
  - Drug interaction [Recovered/Resolved]
  - Hyperkalaemia [Recovered/Resolved]
